FAERS Safety Report 9742586 (Version 1)
Quarter: 2013Q4

REPORT INFORMATION
  Report Type: Spontaneous
  Country: US (occurrence: US)
  Receive Date: 20131210
  Receipt Date: 20131210
  Transmission Date: 20140711
  Serious: No
  Sender: FDA-Public Use
  Company Number: US-GILEAD-2009-0024692

PATIENT
  Sex: Female
  Weight: 61.23 kg

DRUGS (15)
  1. LETAIRIS [Suspect]
     Indication: PULMONARY ARTERIAL HYPERTENSION
     Route: 048
     Dates: start: 20080507
  2. RESTASIS [Concomitant]
  3. PREDNISONE [Concomitant]
  4. GLUCOSAMINE [Concomitant]
  5. ZOCOR [Concomitant]
  6. LASIX [Concomitant]
  7. COUMADIN [Concomitant]
  8. PROCARDIA XL [Concomitant]
  9. REVATIO [Concomitant]
  10. DIGOXIN [Concomitant]
  11. POTASSIUM CL [Concomitant]
  12. ACETYL-D-GLUCOSAMINE [Concomitant]
  13. MULTIVITAMINS [Concomitant]
  14. CALCIUM [Concomitant]
  15. OXYGEN [Concomitant]

REACTIONS (1)
  - Back pain [Unknown]
